FAERS Safety Report 18696723 (Version 1)
Quarter: 2021Q1

REPORT INFORMATION
  Report Type: Spontaneous
  Country: GB (occurrence: GB)
  Receive Date: 20210104
  Receipt Date: 20210104
  Transmission Date: 20210419
  Serious: Yes (Other)
  Sender: FDA-Public Use
  Company Number: GB-MYLANLABS-2020M1105823

PATIENT
  Age: 24 Year
  Sex: Female

DRUGS (7)
  1. LETROZOLE TEVA [Concomitant]
     Active Substance: LETROZOLE
     Dosage: UNK
  2. METRONIDAZOLE. [Suspect]
     Active Substance: METRONIDAZOLE
     Indication: INFECTION PROPHYLAXIS
     Dosage: 2 DOSAGE FORM
     Route: 048
     Dates: start: 20070601, end: 20070601
  3. INFLUENZA VACCINE INACT [Suspect]
     Active Substance: INFLUENZA VIRUS VACCINE
     Indication: INFLUENZA IMMUNISATION
     Dosage: UNK
  4. AMPICILLIN [Suspect]
     Active Substance: AMPICILLIN
     Indication: ABDOMINAL DISCOMFORT
     Dosage: 2 DOSAGE FORM
     Route: 048
     Dates: start: 19740601, end: 19740601
  5. SEPTRIN [Suspect]
     Active Substance: SULFAMETHOXAZOLE\TRIMETHOPRIM
     Indication: ABDOMINAL DISCOMFORT
     Dosage: 2 DOSAGE FORM
     Route: 048
     Dates: start: 19740701, end: 19740701
  6. LETROZOLE ACCORD HEALTHCARE [Suspect]
     Active Substance: LETROZOLE
     Indication: BREAST CONSERVING SURGERY
     Dosage: 1 DOSAGE FORM, QD
     Route: 048
     Dates: start: 20161001, end: 20161030
  7. LETROZOLE ACTAVIS [Concomitant]
     Dosage: UNK

REACTIONS (2)
  - Arthralgia [Unknown]
  - Rash [Recovered/Resolved with Sequelae]

NARRATIVE: CASE EVENT DATE: 19980601
